FAERS Safety Report 7111502-1 (Version None)
Quarter: 2010Q4

REPORT INFORMATION
  Report Type: 
  Country: None (occurrence: None)
  Receive Date: 20101105
  Receipt Date: 20101028
  Transmission Date: 20110411
  Serious: Yes (Other)
  Sender: FDA-Public Use
  Company Number: 2010SP057667

PATIENT
  Sex: Female

DRUGS (1)
  1. IMPLANON [Suspect]
     Indication: CONTRACEPTION
     Dosage: 68 MG, SBDE
     Route: 057

REACTIONS (5)
  - HEADACHE [None]
  - LIBIDO DECREASED [None]
  - MENORRHAGIA [None]
  - MENSTRUATION IRREGULAR [None]
  - THROMBOCYTOPENIA [None]
